FAERS Safety Report 10310065 (Version 4)
Quarter: 2014Q4

REPORT INFORMATION
  Report Type: Spontaneous
  Country: IT (occurrence: IT)
  Receive Date: 20140717
  Receipt Date: 20141201
  Transmission Date: 20150528
  Serious: Yes (Other)
  Sender: FDA-Public Use
  Company Number: IT-SHIRE-IT201403815

PATIENT
  Age: 65 Year
  Sex: Female

DRUGS (1)
  1. 426 (MIDODRINE) [Suspect]
     Active Substance: MIDODRINE
     Indication: HYPOTENSION
     Dosage: 2.5 MG (TOTAL), ONE DOSE (SINGLE DOSE)
     Route: 048
     Dates: start: 20140626, end: 20140626

REACTIONS (3)
  - Vertigo [Recovering/Resolving]
  - Presyncope [Recovering/Resolving]
  - Vomiting [Recovering/Resolving]

NARRATIVE: CASE EVENT DATE: 20140626
